FAERS Safety Report 14172384 (Version 1)
Quarter: 2017Q4

REPORT INFORMATION
  Report Type: Spontaneous
  Country: AR (occurrence: AR)
  Receive Date: 20171109
  Receipt Date: 20171109
  Transmission Date: 20180321
  Serious: Yes (Other)
  Sender: FDA-Public Use
  Company Number: AR-AMGEN-ARGSP2017168188

PATIENT
  Age: 39 Year
  Sex: Male

DRUGS (1)
  1. ENBREL [Suspect]
     Active Substance: ETANERCEPT
     Indication: RHEUMATOID ARTHRITIS
     Dosage: 50 MG, WEEKLY
     Route: 065
     Dates: start: 20150901

REACTIONS (4)
  - Blood uric acid abnormal [Recovering/Resolving]
  - Diabetes mellitus [Recovering/Resolving]
  - Blood cholesterol abnormal [Recovering/Resolving]
  - Blood triglycerides abnormal [Recovering/Resolving]

NARRATIVE: CASE EVENT DATE: 201509
